FAERS Safety Report 10974913 (Version 2)
Quarter: 2015Q3

REPORT INFORMATION
  Report Type: Report from Study
  Country: PT (occurrence: PT)
  Receive Date: 20150401
  Receipt Date: 20150804
  Transmission Date: 20151125
  Serious: Yes (Other)
  Sender: FDA-Public Use
  Company Number: PHHO2015PT004934

PATIENT
  Age: 57 Year
  Sex: Male
  Weight: 83.5 kg

DRUGS (13)
  1. AMN107 [Suspect]
     Active Substance: NILOTINIB
     Dosage: NO TREATMENT
     Route: 065
     Dates: start: 20140513, end: 20140520
  2. NEBIVOLOL. [Concomitant]
     Active Substance: NEBIVOLOL
     Indication: HYPERTENSION
     Dosage: 5 MG, QD
     Route: 065
     Dates: start: 201302
  3. AMN107 [Suspect]
     Active Substance: NILOTINIB
     Dosage: 1 DF (300/600MG), BID
     Route: 048
     Dates: start: 20140701, end: 20140730
  4. AMN107 [Suspect]
     Active Substance: NILOTINIB
     Dosage: 450 MG, BID (150MG IN MORNING, 300MG AT NIGHT)
     Route: 048
     Dates: start: 20140807, end: 20150209
  5. AMN107 [Suspect]
     Active Substance: NILOTINIB
     Dosage: NO TREATMENT
     Route: 065
     Dates: start: 20150210, end: 20150217
  6. AMN107 [Suspect]
     Active Substance: NILOTINIB
     Dosage: 450 MG, BID
     Route: 048
     Dates: start: 20150218, end: 20150323
  7. METFORMIN [Concomitant]
     Active Substance: METFORMIN HYDROCHLORIDE
     Indication: DIABETES MELLITUS
     Dosage: 850/DAY
     Route: 065
     Dates: start: 20140513
  8. AMN107 [Suspect]
     Active Substance: NILOTINIB
     Dosage: 1 DF (300/600MG), BID
     Route: 048
     Dates: start: 20140521, end: 20140623
  9. AMN107 [Suspect]
     Active Substance: NILOTINIB
     Dosage: NO TREATMENT
     Route: 065
     Dates: start: 20140624, end: 20140630
  10. AMN107 [Suspect]
     Active Substance: NILOTINIB
     Dosage: NO TREATMENT
     Route: 065
     Dates: start: 20140731, end: 20140806
  11. AMN107 [Suspect]
     Active Substance: NILOTINIB
     Indication: CHRONIC MYELOID LEUKAEMIA
     Dosage: 1 DF (300/600MG), BID
     Route: 048
     Dates: start: 20140219, end: 20140512
  12. METFORMIN [Concomitant]
     Active Substance: METFORMIN HYDROCHLORIDE
     Dosage: UNK
     Route: 065
     Dates: start: 20150210
  13. LOSARTAN. [Concomitant]
     Active Substance: LOSARTAN
     Indication: HYPERTENSION
     Dosage: 50 MG, QD
     Route: 065
     Dates: start: 201302

REACTIONS (1)
  - Intermittent claudication [Not Recovered/Not Resolved]

NARRATIVE: CASE EVENT DATE: 20150221
